FAERS Safety Report 4297129-8 (Version None)
Quarter: 2004Q1

REPORT INFORMATION
  Report Type: 
  Country: None (occurrence: None)
  Receive Date: 20040213
  Receipt Date: 20040128
  Transmission Date: 20041129
  Serious: Yes (Hospitalization)
  Sender: FDA-Public Use
  Company Number: 200411949BWH

PATIENT
  Age: 68 Year
  Sex: Male
  Weight: 94.3482 kg

DRUGS (4)
  1. AVELOX [Suspect]
     Indication: BRONCHITIS
     Dosage: 400 MG, TOTAL DAILY, ORAL
     Route: 048
     Dates: start: 20040127
  2. PREVACID [Concomitant]
  3. GLUCOPHAGE [Concomitant]
  4. LOW DOSE HYPERTENSION MEDICATION [Concomitant]

REACTIONS (4)
  - HYPOGLYCAEMIA [None]
  - LOSS OF CONSCIOUSNESS [None]
  - PLATELET COUNT DECREASED [None]
  - RECTAL HAEMORRHAGE [None]
